FAERS Safety Report 6985909-7 (Version None)
Quarter: 2010Q3

REPORT INFORMATION
  Report Type: 
  Country: None (occurrence: None)
  Receive Date: 20100827
  Receipt Date: 20100701
  Transmission Date: 20110219
  Serious: No
  Sender: FDA-Public Use
  Company Number: 014753

PATIENT
  Age: 24 Year
  Sex: Female
  Weight: 63.5 kg

DRUGS (2)
  1. LACOSAMIDE [Suspect]
     Indication: CONVULSION
     Dosage: (150 MG BID ORAL)
     Route: 048
     Dates: start: 20100417
  2. LAMICTAL [Concomitant]

REACTIONS (1)
  - COUGH [None]
